FAERS Safety Report 12641429 (Version 1)
Quarter: 2016Q3

REPORT INFORMATION
  Report Type: Spontaneous
  Country: JP (occurrence: JP)
  Receive Date: 20160810
  Receipt Date: 20160810
  Transmission Date: 20161109
  Serious: Yes (Other)
  Sender: FDA-Public Use
  Company Number: JP-SA-2016SA141749

PATIENT
  Age: 36 Year
  Sex: Female
  Weight: 52 kg

DRUGS (1)
  1. MYSLEE [Suspect]
     Active Substance: ZOLPIDEM TARTRATE
     Route: 048

REACTIONS (1)
  - Road traffic accident [Unknown]
